FAERS Safety Report 4570605-6 (Version None)
Quarter: 2005Q1

REPORT INFORMATION
  Report Type: 
  Country: None (occurrence: None)
  Receive Date: 20050204
  Receipt Date: 20050125
  Transmission Date: 20050727
  Serious: Yes (Hospitalization)
  Sender: FDA-Public Use
  Company Number: SGB1-2005-00005

PATIENT
  Age: 39 Year
  Sex: Female
  Weight: 66.5 kg

DRUGS (4)
  1. ONDANSETRON [Suspect]
     Route: 065
  2. METOCLOPRAMIDE [Suspect]
     Route: 065
     Dates: start: 20041118
  3. ZOMETA [Suspect]
     Indication: METASTASES TO BONE
     Dosage: 4MG CYCLIC
     Route: 042
     Dates: start: 20041118
  4. EPIRUBICIN [Concomitant]
     Route: 065
     Dates: start: 20041118

REACTIONS (9)
  - CHILLS [None]
  - DIZZINESS [None]
  - DYSPNOEA [None]
  - FEELING COLD [None]
  - HEADACHE [None]
  - OEDEMA PERIPHERAL [None]
  - ORAL CANDIDIASIS [None]
  - PAIN IN EXTREMITY [None]
  - PHOTOSENSITIVITY REACTION [None]
